FAERS Safety Report 5329748-1 (Version None)
Quarter: 2007Q2

REPORT INFORMATION
  Report Type: 
  Country: None (occurrence: None)
  Receive Date: 20070515
  Receipt Date: 20070430
  Transmission Date: 20071010
  Serious: Yes (Other)
  Sender: FDA-Public Use
  Company Number: 2007VX001319

PATIENT
  Age: 75 Year
  Sex: Female
  Weight: 52 kg

DRUGS (8)
  1. TASMAR [Suspect]
     Dosage: 10 MG; TID; PO
     Route: 048
     Dates: start: 19981001, end: 20061106
  2. SINEMET [Concomitant]
  3. PERMAX [Concomitant]
  4. AMANTADINE HCL [Concomitant]
  5. EXELON [Concomitant]
  6. DOMPERIDONE [Concomitant]
  7. TYLENOL W/ CODEINE NO. 3 [Concomitant]
  8. AMOXICLAV [Concomitant]

REACTIONS (5)
  - ASPARTATE AMINOTRANSFERASE INCREASED [None]
  - BLOOD ALKALINE PHOSPHATASE INCREASED [None]
  - BLOOD LACTATE DEHYDROGENASE INCREASED [None]
  - GAMMA-GLUTAMYLTRANSFERASE INCREASED [None]
  - LIVER FUNCTION TEST ABNORMAL [None]
